FAERS Safety Report 14245247 (Version 1)
Quarter: 2017Q4

REPORT INFORMATION
  Report Type: Report from Study
  Country: CN (occurrence: CN)
  Receive Date: 20171202
  Receipt Date: 20171202
  Transmission Date: 20180321
  Serious: Yes (Other)
  Sender: FDA-Public Use
  Company Number: CN-ROCHE-1872328

PATIENT
  Sex: Female
  Weight: 40 kg

DRUGS (1)
  1. AVASTIN [Suspect]
     Active Substance: BEVACIZUMAB
     Indication: COLORECTAL CANCER
     Route: 041
     Dates: start: 20151119

REACTIONS (10)
  - Intestinal obstruction [Unknown]
  - Fatigue [Unknown]
  - Platelet count decreased [Unknown]
  - Asthenia [Unknown]
  - Sepsis [Unknown]
  - Diarrhoea [Unknown]
  - Heat stroke [Unknown]
  - Hyperpyrexia [Unknown]
  - Nasopharyngitis [Unknown]
  - Pyrexia [Unknown]
